FAERS Safety Report 9003671 (Version 1)
Quarter: 2013Q1

REPORT INFORMATION
  Report Type: Spontaneous
  Country: US (occurrence: US)
  Receive Date: 20130108
  Receipt Date: 20130108
  Transmission Date: 20140127
  Serious: No
  Sender: FDA-Public Use
  Company Number: US-GLAXOSMITHKLINE-A0958002A

PATIENT
  Sex: Male

DRUGS (2)
  1. LOVAZA [Suspect]
     Indication: PRODUCT USED FOR UNKNOWN INDICATION
     Dosage: 4G PER DAY
     Route: 048
     Dates: start: 201107
  2. SIMCOR [Concomitant]
     Indication: HYPERTENSION

REACTIONS (2)
  - Blood cholesterol increased [Unknown]
  - High density lipoprotein decreased [Unknown]
